FAERS Safety Report 8438165-7 (Version None)
Quarter: 2012Q2

REPORT INFORMATION
  Report Type: 
  Country: None (occurrence: None)
  Receive Date: 20120614
  Receipt Date: 20120606
  Transmission Date: 20120825
  Serious: Yes (Life-Threatening, Hospitalization)
  Sender: FDA-Public Use
  Company Number: FR-BAXTER-2012BAX006903

PATIENT
  Sex: Female
  Weight: 67 kg

DRUGS (4)
  1. DOXORUBICIN HCL [Suspect]
     Route: 042
     Dates: start: 20120426
  2. CYCLOPHOSPHAMIDE [Suspect]
     Route: 042
     Dates: start: 20120426
  3. VINCRISTINE SULFATE [Suspect]
     Route: 042
     Dates: start: 20120426
  4. PREDNISOLONE [Suspect]
     Route: 048
     Dates: start: 20120426

REACTIONS (4)
  - ANAEMIA [None]
  - SMALL INTESTINAL OBSTRUCTION [None]
  - FEBRILE NEUTROPENIA [None]
  - DEVICE RELATED INFECTION [None]
